FAERS Safety Report 12211721 (Version 3)
Quarter: 2017Q1

REPORT INFORMATION
  Report Type: Spontaneous
  Country: US (occurrence: US)
  Receive Date: 20160325
  Receipt Date: 20170228
  Transmission Date: 20170428
  Serious: No
  Sender: FDA-Public Use
  Company Number: US-VERTEX PHARMACEUTICALS-2016-001970

PATIENT
  Age: 42 Year
  Sex: Female

DRUGS (19)
  1. ALBUTEROL SULFATE HFA [Concomitant]
     Active Substance: ALBUTEROL SULFATE
     Dosage: INHALE 2 PUFF EVERY 4-6 HOURS
     Route: 055
  2. BIOTIN [Concomitant]
     Active Substance: BIOTIN
  3. HYPERSAL [Concomitant]
     Dosage: INHALE 1, BID, ALTERNATE EVERY OTHER MONTH WITH CAYSTON
     Route: 055
  4. CREON [Concomitant]
     Active Substance: PANCRELIPASE AMYLASE\PANCRELIPASE LIPASE\PANCRELIPASE PROTEASE
     Dosage: 2 DF, TID EVERY WITH MEALS AND 1 DF WITH EACH SNACK
     Route: 048
  5. PULMOZYME [Concomitant]
     Active Substance: DORNASE ALFA
     Dosage: 2.5 MG, QD
     Route: 055
  6. MUCINEX [Concomitant]
     Active Substance: GUAIFENESIN
     Dosage: 2 DF, BID, PRN
     Route: 048
  7. LANSOPRAZOLE. [Concomitant]
     Active Substance: LANSOPRAZOLE
  8. LINEZOLID. [Concomitant]
     Active Substance: LINEZOLID
     Dosage: 1 DF, BID
     Route: 048
  9. AQUADEKS [Concomitant]
     Active Substance: MINERALS\VITAMINS
     Dosage: 2 DF, BID
     Route: 048
  10. ORKAMBI [Suspect]
     Active Substance: IVACAFTOR\LUMACAFTOR
     Indication: CYSTIC FIBROSIS
     Dosage: 2 DF, BID WITH FAT CONTAINING FOOD
     Route: 048
     Dates: start: 20150713
  11. NOVOLOG [Concomitant]
     Active Substance: INSULIN ASPART
     Dosage: INJECT AS INSULIN PUMP PROTOCAL
     Route: 058
  12. ZITHROMAX [Concomitant]
     Active Substance: AZITHROMYCIN DIHYDRATE
     Dosage: 1 DF, M,W,F
     Route: 048
  13. SUPER B 50 COMPLEX [Concomitant]
  14. SEREVENT DISKUS [Concomitant]
     Active Substance: SALMETEROL XINAFOATE
     Dosage: INHALE 1 PUFF BID IN THE MORNING AND EVENING APPROXIMATELY 12 HOUR
     Route: 055
  15. CIPROFLOXACIN. [Concomitant]
     Active Substance: CIPROFLOXACIN
     Dosage: 1 DF, BID FOR 10 DAYS
     Route: 048
  16. CAYSTON [Concomitant]
     Active Substance: AZTREONAM
     Dosage: 1 AMPULE, TID, EVERY OTHER 28 DAY PERIOD
     Route: 055
  17. VITAMIN C [Concomitant]
     Active Substance: ASCORBIC ACID
     Dosage: 1 DF, QD
     Route: 048
  18. PREVACID [Concomitant]
     Active Substance: LANSOPRAZOLE
     Dosage: 1 DF, QD, BEFORE A MEAL
     Route: 048
  19. IBUPROFEN. [Concomitant]
     Active Substance: IBUPROFEN
     Dosage: 1 DF, PTID, RN
     Route: 048

REACTIONS (1)
  - Drug screen false positive [Unknown]

NARRATIVE: CASE EVENT DATE: 20160311
